FAERS Safety Report 7134356-6 (Version None)
Quarter: 2010Q4

REPORT INFORMATION
  Report Type: 
  Country: None (occurrence: None)
  Receive Date: 20101130
  Receipt Date: 20101130
  Transmission Date: 20110411
  Serious: Yes (Other)
  Sender: FDA-Public Use
  Company Number: None

PATIENT
  Age: 70 Year
  Sex: Female
  Weight: 58.9676 kg

DRUGS (2)
  1. RECLAST [Suspect]
     Indication: OSTEOPOROSIS
     Dosage: 5 MG 1 PER YEAR
     Dates: start: 20090211, end: 20090211
  2. RECLAST [Suspect]
     Indication: OSTEOPOROSIS
     Dosage: 5 MG 1 PER YEAR
     Dates: start: 20100222, end: 20100222

REACTIONS (3)
  - APHTHOUS STOMATITIS [None]
  - EXOSTOSIS [None]
  - RASH [None]
